FAERS Safety Report 13038308 (Version 1)
Quarter: 2016Q4

REPORT INFORMATION
  Report Type: Report from Study
  Country: None (occurrence: US)
  Receive Date: 20161219
  Receipt Date: 20161219
  Transmission Date: 20170207
  Serious: No
  Sender: FDA-Public Use
  Company Number: US-BIOVITRUM-2015US0381

PATIENT
  Age: 62 Year
  Sex: Female

DRUGS (8)
  1. METOPROLOL. [Concomitant]
     Active Substance: METOPROLOL
     Route: 048
  2. AMLODIPINE [Concomitant]
     Active Substance: AMLODIPINE BESYLATE
     Route: 048
  3. ASPIRIN. [Concomitant]
     Active Substance: ASPIRIN
  4. KINERET [Suspect]
     Active Substance: ANAKINRA
     Route: 058
     Dates: start: 20150601
  5. PREMARIN [Concomitant]
     Active Substance: ESTROGENS, CONJUGATED
     Route: 048
  6. FLUOXETINE [Concomitant]
     Active Substance: FLUOXETINE HYDROCHLORIDE
     Route: 048
  7. LEVOTHYROXINE. [Concomitant]
     Active Substance: LEVOTHYROXINE
     Route: 048
  8. HYDROCODONE [Concomitant]
     Active Substance: HYDROCODONE
     Dosage: 7.5/325 MG AS NEEDED
     Route: 048

REACTIONS (2)
  - Injection site urticaria [Not Recovered/Not Resolved]
  - Wheezing [Not Recovered/Not Resolved]

NARRATIVE: CASE EVENT DATE: 20150601
